FAERS Safety Report 13973984 (Version 11)
Quarter: 2018Q3

REPORT INFORMATION
  Report Type: Spontaneous
  Country: DE (occurrence: DE)
  Receive Date: 20170915
  Receipt Date: 20180927
  Transmission Date: 20181010
  Serious: Yes (Other)
  Sender: FDA-Public Use
  Company Number: DE-PFIZER INC-2017393939

PATIENT
  Age: 77 Year
  Sex: Female
  Weight: 78 kg

DRUGS (16)
  1. HEPARIN?RATIOPHARM [Interacting]
     Active Substance: HEPARIN SODIUM
     Dosage: 50000 IU, DAILY DOSE
     Route: 042
     Dates: end: 20170823
  2. NORADRENALINE [Interacting]
     Active Substance: NOREPINEPHRINE
     Dosage: 1.0 UG/KG/MIN 10 HRS POST OPERATIVE
  3. METOPROLOL. [Concomitant]
     Active Substance: METOPROLOL
     Dosage: 95 MILLIGRAM DAILY; 1?0?1
  4. NORADRENALINE [Interacting]
     Active Substance: NOREPINEPHRINE
     Dosage: UP TO 0.35 UG/KG/MIN PERIOPERATIVE (7 SINGLE DOSES OF 10?20 UG)
  5. VALSARTAN AND HYDROCHLOROTHIAZIDE [Concomitant]
     Active Substance: HYDROCHLOROTHIAZIDE\VALSARTAN
     Dosage: 1 DF, 1X/DAY (1?0?0)
  6. ASPIRIN. [Concomitant]
     Active Substance: ASPIRIN
     Dosage: 100 MILLIGRAM DAILY; 0?1?0
  7. CUSTODIOL [Concomitant]
     Dosage: 950 ML, UNK
     Dates: start: 20170823
  8. TRANEXAMIC ACID. [Suspect]
     Active Substance: TRANEXAMIC ACID
     Indication: CORONARY ARTERY BYPASS
     Dosage: 2 G, UNK (500 MG 5 ML)
  9. TRANEXAMIC ACID. [Suspect]
     Active Substance: TRANEXAMIC ACID
     Indication: AORTIC VALVE REPLACEMENT
     Dosage: 10 ML, UNK (1 G)
     Dates: start: 20170823, end: 20170823
  10. HEPARIN?RATIOPHARM [Interacting]
     Active Substance: HEPARIN SODIUM
     Indication: CORONARY ARTERY BYPASS
     Dosage: 50000 IU, DAILY DOSE
     Route: 042
     Dates: start: 20170823
  11. ATORVASTATIN [Concomitant]
     Active Substance: ATORVASTATIN
     Dosage: 10 MILLIGRAM DAILY; 0?0?0.5
  12. VALSARTAN AND HYDROCHLOROTHIAZIDE [Concomitant]
     Active Substance: HYDROCHLOROTHIAZIDE\VALSARTAN
     Dosage: [VALSARTAN 160 MG]/[HYDROCHLOROTHIAZIDE12.5 MG], 1X/DAY
  13. HEPARIN?RATIOPHARM [Interacting]
     Active Substance: HEPARIN SODIUM
     Indication: AORTIC VALVE REPLACEMENT
     Dosage: 50000 IU, DAILY DOSE
     Route: 042
  14. AMLODIPINE [Concomitant]
     Active Substance: AMLODIPINE BESYLATE
     Dosage: 2.5 MILLIGRAM DAILY; 0.5?0?0
  15. METOPROLOL. [Concomitant]
     Active Substance: METOPROLOL
     Dosage: 47.5 MG, EVERY 12 HOURS
  16. STEROFUNDIN [Concomitant]
     Active Substance: CALCIUM CHLORIDE\MAGNESIUM CHLORIDE\POTASSIUM CHLORIDE\SODIUM ACETATE\SODIUM CHLORIDE
     Dosage: 1250 ML, DAILY (2.5 MG)
     Dates: start: 20170823

REACTIONS (6)
  - Renal failure [Unknown]
  - Alanine aminotransferase increased [Unknown]
  - Product use in unapproved indication [Unknown]
  - Drug interaction [Unknown]
  - Transaminases increased [Unknown]
  - Drug effect incomplete [Unknown]

NARRATIVE: CASE EVENT DATE: 20170823
